FAERS Safety Report 9058928 (Version 1)
Quarter: 2013Q1

REPORT INFORMATION
  Report Type: Spontaneous
  Country: US (occurrence: US)
  Receive Date: 20130211
  Receipt Date: 20130211
  Transmission Date: 20140127
  Serious: No
  Sender: FDA-Public Use
  Company Number: US-BRISTOL-MYERS SQUIBB COMPANY-16382640

PATIENT
  Age: 69 Year
  Sex: Male

DRUGS (4)
  1. METFORMIN HCL [Suspect]
     Indication: HYPERTENSION
  2. METFORMIN HCL [Suspect]
     Indication: DIABETES MELLITUS
  3. CLARITIN [Suspect]
     Dosage: FORM; CLARITIN ALLERGY 24HR TAB. FREQ: ONCE
     Route: 048
     Dates: start: 20111204
  4. INSULIN [Suspect]
     Indication: DIABETES MELLITUS

REACTIONS (1)
  - Blood glucose decreased [Recovered/Resolved]
